FAERS Safety Report 18843281 (Version 1)
Quarter: 2021Q1

REPORT INFORMATION
  Report Type: Spontaneous
  Country: US (occurrence: US)
  Receive Date: 20210203
  Receipt Date: 20210203
  Transmission Date: 20210419
  Serious: No
  Sender: FDA-Public Use
  Company Number: US-EXELIXIS-CABO-19026218

PATIENT
  Age: 77 Year
  Sex: Male

DRUGS (5)
  1. METOPROLOL. [Concomitant]
     Active Substance: METOPROLOL
  2. PLAVIX [Concomitant]
     Active Substance: CLOPIDOGREL BISULFATE
  3. ASPIRIN. [Concomitant]
     Active Substance: ASPIRIN
  4. AMLODIPINE [Concomitant]
     Active Substance: AMLODIPINE BESYLATE
  5. CABOMETYX [Suspect]
     Active Substance: CABOZANTINIB S-MALATE
     Indication: CLEAR CELL RENAL CELL CARCINOMA
     Dosage: 60 MG, QD
     Route: 048

REACTIONS (24)
  - Ageusia [Not Recovered/Not Resolved]
  - Mental disorder [Not Recovered/Not Resolved]
  - Heart rate decreased [Unknown]
  - Lymphocyte count decreased [Unknown]
  - Thrombosis [Not Recovered/Not Resolved]
  - Thrombocytopenia [Not Recovered/Not Resolved]
  - Fatigue [Unknown]
  - Anxiety [Unknown]
  - Bradyphrenia [Unknown]
  - Nasopharyngitis [Unknown]
  - Diarrhoea [Unknown]
  - Weight decreased [Not Recovered/Not Resolved]
  - Monocyte count increased [Unknown]
  - Neutropenia [Not Recovered/Not Resolved]
  - Blood lactate dehydrogenase increased [Unknown]
  - Blood magnesium decreased [Unknown]
  - Dysphonia [Unknown]
  - Amnesia [Unknown]
  - Blood sodium decreased [Unknown]
  - Hypertension [Recovering/Resolving]
  - Purpura [Not Recovered/Not Resolved]
  - Tongue discolouration [Unknown]
  - Palmar-plantar erythrodysaesthesia syndrome [Not Recovered/Not Resolved]
  - Decreased appetite [Unknown]

NARRATIVE: CASE EVENT DATE: 20191216
